FAERS Safety Report 8121651 (Version 3)
Quarter: 2012Q4

REPORT INFORMATION
  Report Type: Report from Study
  Country: ES (occurrence: ES)
  Receive Date: 20110906
  Receipt Date: 20121126
  Transmission Date: 20130627
  Serious: Yes (Hospitalization, Other)
  Sender: FDA-Public Use
  Company Number: ES-GLAXOSMITHKLINE-B0744310A

PATIENT
  Age: 55 Year
  Sex: Female
  Weight: 81 kg

DRUGS (1)
  1. PAZOPANIB [Suspect]
     Indication: OVARIAN NEOPLASM
     Dosage: 800MG Per day
     Route: 048
     Dates: start: 20110413, end: 20110823

REACTIONS (2)
  - Female genital tract fistula [Recovered/Resolved with Sequelae]
  - Colonic fistula [Recovered/Resolved with Sequelae]
